FAERS Safety Report 11421755 (Version 4)
Quarter: 2015Q4

REPORT INFORMATION
  Report Type: Spontaneous
  Country: US (occurrence: US)
  Receive Date: 20150827
  Receipt Date: 20151224
  Transmission Date: 20160304
  Serious: No
  Sender: FDA-Public Use
  Company Number: US-AMGEN-USASP2015085912

PATIENT
  Age: 53 Year
  Sex: Male

DRUGS (12)
  1. LOSARTAN POTASSIUM. [Concomitant]
     Active Substance: LOSARTAN POTASSIUM
  2. PROVENTIL [Concomitant]
     Active Substance: ALBUTEROL
  3. FOLIC ACID. [Concomitant]
     Active Substance: FOLIC ACID
     Dosage: UNK
  4. METHOTREXATE [Concomitant]
     Active Substance: METHOTREXATE
  5. HYDROCODONE BITARTRATE AND ACETAMINOPHEN [Concomitant]
     Active Substance: ACETAMINOPHEN\HYDROCODONE BITARTRATE
     Dosage: UNK
  6. IBUPROFEN. [Concomitant]
     Active Substance: IBUPROFEN
  7. VITAMIN D                          /00107901/ [Concomitant]
     Active Substance: ERGOCALCIFEROL
     Dosage: UNK
  8. ENBREL [Suspect]
     Active Substance: ETANERCEPT
     Indication: ANKYLOSING SPONDYLITIS
     Dosage: 50 MG, QWK
     Route: 058
     Dates: start: 20150206
  9. ATENOLOL. [Concomitant]
     Active Substance: ATENOLOL
  10. GABAPENTIN. [Concomitant]
     Active Substance: GABAPENTIN
  11. MOMETASONE FUROATE. [Concomitant]
     Active Substance: MOMETASONE FUROATE
  12. ALLOPURINOL. [Concomitant]
     Active Substance: ALLOPURINOL
     Dosage: UNK

REACTIONS (8)
  - Respiratory tract congestion [Unknown]
  - Knee deformity [Unknown]
  - Pain [Unknown]
  - Impaired work ability [Unknown]
  - Neck pain [Unknown]
  - Joint lock [Not Recovered/Not Resolved]
  - Condition aggravated [Unknown]
  - Back pain [Unknown]

NARRATIVE: CASE EVENT DATE: 2015
